FAERS Safety Report 18288023 (Version 1)
Quarter: 2020Q3

REPORT INFORMATION
  Report Type: Spontaneous
  Country: US (occurrence: US)
  Receive Date: 20200919
  Receipt Date: 20200919
  Transmission Date: 20201103
  Serious: Yes (Life-Threatening, Disabling, Other)
  Sender: FDA-Public Use
  Company Number: None

PATIENT
  Age: 62 Year
  Sex: Male
  Weight: 65.25 kg

DRUGS (2)
  1. XANAX [Suspect]
     Active Substance: ALPRAZOLAM
  2. HYDROCODONE?ACETAMINOPHEN [Suspect]
     Active Substance: ACETAMINOPHEN\HYDROCODONE
     Indication: TESTICULAR PAIN
     Dosage: ?          QUANTITY:2 TABLET(S);?
     Route: 048
     Dates: start: 20000701, end: 20200919

REACTIONS (12)
  - Disability [None]
  - Blood pressure increased [None]
  - Therapy cessation [None]
  - Anxiety [None]
  - Confusional state [None]
  - Depression [None]
  - Dyspnoea [None]
  - Suicidal ideation [None]
  - Testicular pain [None]
  - Withdrawal syndrome [None]
  - Panic attack [None]
  - Loss of personal independence in daily activities [None]

NARRATIVE: CASE EVENT DATE: 20200918
